FAERS Safety Report 8550987-0 (Version None)
Quarter: 2012Q3

REPORT INFORMATION
  Report Type: 
  Country: None (occurrence: None)
  Receive Date: 20120730
  Receipt Date: 20120718
  Transmission Date: 20120928
  Serious: Yes (Hospitalization, Disabling, Other)
  Sender: FDA-Public Use
  Company Number: US-009507513-1109USA01764

PATIENT

DRUGS (14)
  1. MK-9278 [Concomitant]
     Dates: start: 20000101
  2. SYNTHROID [Concomitant]
     Dosage: 125 ?G, QD
  3. WELLBUTRIN [Concomitant]
     Dosage: 300 MG, QD
  4. PAXIL [Concomitant]
  5. LEXAPRO [Concomitant]
  6. FOSAMAX [Suspect]
     Dosage: 70 MG, UNK
     Route: 048
     Dates: start: 20050301, end: 20080101
  7. HORMONES (UNSPECIFIED) [Concomitant]
     Dates: start: 19960101, end: 20110101
  8. LEVOTIROXINA S.O [Concomitant]
     Indication: HYPOTHYROIDISM
     Dates: start: 19680101
  9. WELLBUTRIN [Concomitant]
     Dosage: 150 MG, BID
  10. DIOVAN HCT [Concomitant]
     Dosage: 160/12.5
  11. FOSAMAX [Suspect]
     Indication: OSTEOPOROSIS
     Dosage: 35 MG, UNK
     Route: 048
     Dates: start: 20020301, end: 20050301
  12. MIACALCIN [Concomitant]
     Indication: OSTEOPOROSIS
  13. DIOVAN HCT [Concomitant]
     Dosage: 160/25
  14. FOSAMAX [Suspect]
     Dosage: 70 MG, UNK
     Route: 048
     Dates: start: 20080201, end: 20101001

REACTIONS (43)
  - TIBIA FRACTURE [None]
  - RETINAL HAEMORRHAGE [None]
  - INSOMNIA [None]
  - FRACTURE DELAYED UNION [None]
  - MUSCULOSKELETAL PAIN [None]
  - FALL [None]
  - DIVERTICULUM INTESTINAL [None]
  - LOW TURNOVER OSTEOPATHY [None]
  - OSTEOPENIA [None]
  - OSTEOARTHRITIS [None]
  - DIZZINESS [None]
  - WOUND INFECTION STAPHYLOCOCCAL [None]
  - ANKLE FRACTURE [None]
  - DERMATITIS CONTACT [None]
  - ANXIETY [None]
  - ANKYLOSING SPONDYLITIS [None]
  - CONTUSION [None]
  - NECK PAIN [None]
  - NERVE COMPRESSION [None]
  - PAIN [None]
  - VERTEBRAL FORAMINAL STENOSIS [None]
  - FEMUR FRACTURE [None]
  - LIGAMENT SPRAIN [None]
  - BACK PAIN [None]
  - ROAD TRAFFIC ACCIDENT [None]
  - CATARACT [None]
  - SPINAL OSTEOARTHRITIS [None]
  - DEVICE FAILURE [None]
  - MUSCULOSKELETAL DISORDER [None]
  - HYPERCHOLESTEROLAEMIA [None]
  - MUSCLE STRAIN [None]
  - PAIN IN EXTREMITY [None]
  - MEMORY IMPAIRMENT [None]
  - ACUTE SINUSITIS [None]
  - DRUG INEFFECTIVE [None]
  - ARTHROPATHY [None]
  - PATELLA FRACTURE [None]
  - SCRATCH [None]
  - SCOLIOSIS [None]
  - FOOT FRACTURE [None]
  - MUSCULAR WEAKNESS [None]
  - EMOTIONAL DISTRESS [None]
  - GASTROOESOPHAGEAL REFLUX DISEASE [None]
